FAERS Safety Report 11796549 (Version 1)
Quarter: 2015Q4

REPORT INFORMATION
  Report Type: Spontaneous
  Country: SI (occurrence: SI)
  Receive Date: 20151203
  Receipt Date: 20151203
  Transmission Date: 20160305
  Serious: No
  Sender: FDA-Public Use
  Company Number: SI-GLENMARK PHARMACEUTICALS INC, USA.-2015GMK017061

PATIENT

DRUGS (1)
  1. PRAMIPEXOLE. [Suspect]
     Active Substance: PRAMIPEXOLE
     Indication: PARKINSON^S DISEASE
     Dosage: UNK

REACTIONS (2)
  - Jealous delusion [Recovered/Resolved]
  - Activities of daily living impaired [None]
